FAERS Safety Report 12452139 (Version 6)
Quarter: 2017Q3

REPORT INFORMATION
  Report Type: Spontaneous
  Country: KR (occurrence: KR)
  Receive Date: 20160609
  Receipt Date: 20170801
  Transmission Date: 20171127
  Serious: Yes (Hospitalization, Other)
  Sender: FDA-Public Use
  Company Number: KR-009507513-1606KOR004035

PATIENT
  Age: 55 Year
  Sex: Male
  Weight: 60.9 kg

DRUGS (20)
  1. MEPERIDINE HYDROCHLORIDE. [Concomitant]
     Active Substance: MEPERIDINE HYDROCHLORIDE
     Indication: PAIN PROPHYLAXIS
     Dosage: 50 MG, ONCE
     Route: 030
     Dates: start: 20150819, end: 20150819
  2. ILDONG ARONAMIN C PLUS [Concomitant]
     Indication: NUTRITIONAL SUPPLEMENTATION
     Dosage: 1 TABLET, QD
     Route: 048
     Dates: start: 20150702
  3. URSA TABLETS [Concomitant]
     Indication: HEPATITIS B
     Dosage: 200 MG, TID
     Route: 048
     Dates: start: 20150703
  4. LASIX [Concomitant]
     Active Substance: FUROSEMIDE
     Indication: PROPHYLAXIS
     Dosage: 20 MG, QD
     Route: 048
     Dates: start: 20150703, end: 20150827
  5. CISPLATIN. [Concomitant]
     Active Substance: CISPLATIN
     Indication: HEPATIC CANCER
     Dosage: 20 MG, ONCE, CYCLE 2; STRENGTH: 10MG/20ML
     Route: 013
     Dates: start: 20150819, end: 20150819
  6. KYTRIL [Concomitant]
     Active Substance: GRANISETRON HYDROCHLORIDE
     Indication: PROPHYLAXIS OF NAUSEA AND VOMITING
     Dosage: 1 MG, QD
     Route: 048
     Dates: start: 20150817, end: 20150827
  7. DEXTROSE. [Concomitant]
     Active Substance: DEXTROSE
     Indication: FLUID REPLACEMENT
     Dosage: 1000 ML, BID
     Route: 042
     Dates: start: 20150819, end: 20150819
  8. DUPHALAC [Concomitant]
     Active Substance: LACTULOSE
     Indication: CONSTIPATION PROPHYLAXIS
     Dosage: 30 ML, ONCE
     Route: 048
     Dates: start: 20150819, end: 20150819
  9. DEXAMETHASONE SODIUM PHOSPHATE. [Concomitant]
     Active Substance: DEXAMETHASONE SODIUM PHOSPHATE
     Indication: PREMEDICATION
     Dosage: 5 MG, ONCE; STRENGTH: 5MG/ML
     Route: 042
     Dates: start: 20150819, end: 20150819
  10. CISPLATIN. [Concomitant]
     Active Substance: CISPLATIN
     Indication: HEPATIC CANCER
     Dosage: 100 MG, ONCE, CYCLE 2; STRENGTH: 50MG/100ML
     Route: 013
     Dates: start: 20150819, end: 20150819
  11. LEGALON [Concomitant]
     Active Substance: MILK THISTLE
     Indication: HEPATITIS B
     Dosage: 280 MG, BID
     Route: 048
     Dates: start: 20150703, end: 20150827
  12. NEXIUM [Concomitant]
     Active Substance: ESOMEPRAZOLE MAGNESIUM
     Indication: PROPHYLAXIS AGAINST GASTROINTESTINAL ULCER
     Dosage: 20 MG, QD
     Route: 048
     Dates: start: 20150710, end: 20150827
  13. ALDACTONE [Concomitant]
     Active Substance: SPIRONOLACTONE
     Indication: PROPHYLAXIS
     Dosage: 50 MG, QD
     Route: 048
     Dates: start: 20150703, end: 20150827
  14. ALBUMIN HUMAN [Concomitant]
     Active Substance: ALBUMIN HUMAN
     Indication: PROPHYLAXIS
     Dosage: 100 MG, QD; STRENGTH: 20% 100 ML
     Route: 042
     Dates: start: 20150818, end: 20150826
  15. 10% DEXTROSE NAK 2 [Concomitant]
     Indication: FLUID REPLACEMENT
     Dosage: 1000 ML, QD (10 %, 1000 ML)
     Route: 042
     Dates: start: 20150819, end: 20150821
  16. EMEND (FOSAPREPITANT DIMEGLUMINE) [Suspect]
     Active Substance: FOSAPREPITANT DIMEGLUMINE
     Indication: PROPHYLAXIS OF NAUSEA AND VOMITING
     Dosage: 150 MG, ONCE
     Route: 042
     Dates: start: 20150819, end: 20150819
  17. PENIRAMIN [Concomitant]
     Indication: PROPHYLAXIS OF NAUSEA AND VOMITING
     Dosage: 4 MG, QD
     Route: 030
     Dates: start: 20150817, end: 20150819
  18. TEPRA [Concomitant]
     Indication: PROPHYLAXIS
     Dosage: 40 MG, BID
     Route: 048
     Dates: start: 20150704, end: 20150817
  19. ALOXI [Concomitant]
     Active Substance: PALONOSETRON HYDROCHLORIDE
     Indication: PROPHYLAXIS OF NAUSEA AND VOMITING
     Dosage: 0.25 MG, ONCE
     Route: 042
     Dates: start: 20150819, end: 20150819
  20. VIREAD [Concomitant]
     Active Substance: TENOFOVIR DISOPROXIL FUMARATE
     Indication: HEPATITIS B
     Dosage: 300 MG, QD
     Route: 048
     Dates: start: 20150706, end: 20150827

REACTIONS (3)
  - Ascites [Unknown]
  - Abdominal discomfort [Recovered/Resolved]
  - Dizziness [Recovered/Resolved]

NARRATIVE: CASE EVENT DATE: 20150819
